FAERS Safety Report 18921351 (Version 1)
Quarter: 2021Q1

REPORT INFORMATION
  Report Type: Spontaneous
  Country: US (occurrence: US)
  Receive Date: 20210222
  Receipt Date: 20210222
  Transmission Date: 20210420
  Serious: Yes (Other)
  Sender: FDA-Public Use
  Company Number: US-GLAXOSMITHKLINE-US2021GSK030600

PATIENT
  Sex: Female

DRUGS (8)
  1. ZANTAC [Suspect]
     Active Substance: RANITIDINE HYDROCHLORIDE
     Indication: URTICARIA
  2. ZANTAC [Suspect]
     Active Substance: RANITIDINE HYDROCHLORIDE
     Indication: MULTIPLE ALLERGIES
     Dosage: 150 MG, QD
     Route: 065
     Dates: start: 200606, end: 202003
  3. ZANTAC [Suspect]
     Active Substance: RANITIDINE HYDROCHLORIDE
     Indication: URTICARIA
  4. ZANTAC [Suspect]
     Active Substance: RANITIDINE HYDROCHLORIDE
     Indication: MULTIPLE ALLERGIES
     Dosage: 150 MG, QD
     Route: 065
     Dates: start: 200606, end: 202003
  5. ZANTAC [Suspect]
     Active Substance: RANITIDINE HYDROCHLORIDE
     Indication: URTICARIA
  6. ZANTAC [Suspect]
     Active Substance: RANITIDINE HYDROCHLORIDE
     Indication: MULTIPLE ALLERGIES
     Dosage: 150 MG, QD
     Route: 065
     Dates: start: 200606, end: 202003
  7. RANITIDINE CAPSULE [Suspect]
     Active Substance: RANITIDINE
     Indication: MULTIPLE ALLERGIES
     Dosage: 150 MG, QD
     Route: 065
     Dates: start: 200606, end: 202003
  8. RANITIDINE CAPSULE [Suspect]
     Active Substance: RANITIDINE
     Indication: URTICARIA

REACTIONS (1)
  - Haematological malignancy [Unknown]
